FAERS Safety Report 15137094 (Version 1)
Quarter: 2018Q3

REPORT INFORMATION
  Report Type: Spontaneous
  Country: US (occurrence: US)
  Receive Date: 20180712
  Receipt Date: 20180712
  Transmission Date: 20181010
  Serious: No
  Sender: FDA-Public Use
  Company Number: US-FOUNDATIONCONSUMERHC-2018-US-009108

PATIENT
  Age: 27 Year
  Sex: Female
  Weight: 44 kg

DRUGS (2)
  1. PLAN B ONE?STEP [Suspect]
     Active Substance: LEVONORGESTREL
     Indication: POST COITAL CONTRACEPTION
     Dosage: 1.5 MG
     Route: 048
     Dates: start: 20180507, end: 20180507
  2. KLONOPIN [Concomitant]
     Active Substance: CLONAZEPAM

REACTIONS (5)
  - Intentional product misuse [Recovered/Resolved]
  - Thyroid function test normal [Unknown]
  - Condition aggravated [Recovered/Resolved]
  - Nausea [Recovered/Resolved]
  - Menstruation delayed [Not Recovered/Not Resolved]

NARRATIVE: CASE EVENT DATE: 20180507
